FAERS Safety Report 22388921 (Version 3)
Quarter: 2023Q2

REPORT INFORMATION
  Report Type: Report from Study
  Country: AT (occurrence: None)
  Receive Date: 20230531
  Receipt Date: 20230620
  Transmission Date: 20230722
  Serious: Yes (Hospitalization)
  Sender: FDA-Public Use
  Company Number: AT-ROCHE-3254459

PATIENT
  Age: 56 Year
  Sex: Female
  Weight: 76 kg

DRUGS (28)
  1. CISPLATIN [Suspect]
     Active Substance: CISPLATIN
     Indication: Malignant neoplasm of unknown primary site
     Dosage: 60-75 MG/M^2, ONCE EVERY THREE WEEKS, FOR UP TO 9 CYCLES (CYCLE = 21 DAYS) ?ON 27/OCT/2022, RECEIVED
     Route: 042
     Dates: start: 20220916
  2. CISPLATIN [Suspect]
     Active Substance: CISPLATIN
     Dosage: DATE OF LAST DOSE OF TREATMENT STUDY DRUG 1 PRIOR TO SAE/AESI ONSET, 16 JAN 2023, 100MG
     Route: 042
     Dates: start: 20221125
  3. GEMCITABINE [Suspect]
     Active Substance: GEMCITABINE
     Indication: Malignant neoplasm of unknown primary site
     Dosage: 1000 MG/M^2, TWICE EVERY THREE WEEKS FOR UP TO 9 CYCLES (CYCLE = 21 DAYS)?ON 03/NOV/2022, RECEIVED M
     Route: 042
     Dates: start: 20220916
  4. GEMCITABINE [Suspect]
     Active Substance: GEMCITABINE
     Dosage: DATE OF LAST DOSE OF TREATMENT STUDY DRUG 2 PRIOR TO SAE/AESI ONSET 23/JAN/2023, 1394.38
     Route: 042
     Dates: start: 20221125
  5. TRASTUZUMAB [Suspect]
     Active Substance: TRASTUZUMAB
     Indication: Malignant neoplasm of unknown primary site
     Dosage: DATE OF LAST DOSE OF  600MG TREATMENT STUDY DRUG 3 PRIOR TO SAE/AESI ONSET 02 MAY 2023
     Route: 058
     Dates: start: 20221125
  6. PERTUZUMAB [Suspect]
     Active Substance: PERTUZUMAB
     Indication: Malignant neoplasm of unknown primary site
     Dosage: DATE OF LAST DOSE OF  420 MG TREATMENT STUDY DRUG 4 PRIOR TO SAE/AESI ONSET 02/MAY/2023
     Route: 042
     Dates: start: 20221125
  7. PANTOPRAZOLE SODIUM [Concomitant]
     Active Substance: PANTOPRAZOLE SODIUM
     Indication: Premedication
     Route: 048
     Dates: start: 20220917
  8. CANDESARTAN [Concomitant]
     Active Substance: CANDESARTAN
     Indication: Hypertension
     Route: 048
     Dates: start: 20221025
  9. BISOPROLOL FUMARATE [Concomitant]
     Active Substance: BISOPROLOL FUMARATE
     Indication: Hypertension
     Route: 048
     Dates: start: 20221103
  10. ROSUVASTATIN [Concomitant]
     Active Substance: ROSUVASTATIN
     Indication: Hyperlipidaemia
     Route: 048
     Dates: start: 20221125
  11. APREPITANT [Concomitant]
     Active Substance: APREPITANT
     Route: 048
     Dates: start: 20221125, end: 20230116
  12. APREPITANT [Concomitant]
     Active Substance: APREPITANT
     Route: 048
     Dates: start: 20221126, end: 20230118
  13. ONDANSETRON [Concomitant]
     Active Substance: ONDANSETRON
     Route: 048
     Dates: start: 20221125, end: 20230116
  14. DEXAMETHASONE [Concomitant]
     Active Substance: DEXAMETHASONE
     Route: 048
     Dates: start: 20221125, end: 20230116
  15. AMLODIPINE BESYLATE [Concomitant]
     Active Substance: AMLODIPINE BESYLATE
     Indication: Hypertension
     Route: 048
     Dates: start: 20221128
  16. PASPERTIN [Concomitant]
     Indication: Nausea
     Route: 048
     Dates: start: 20221202, end: 20230301
  17. IMODIUM [Concomitant]
     Active Substance: LOPERAMIDE HYDROCHLORIDE
     Indication: Diarrhoea
     Route: 048
     Dates: start: 20221212, end: 20221228
  18. CORMAGNESIN [Concomitant]
     Indication: Diarrhoea
     Route: 042
     Dates: start: 20221215, end: 20221215
  19. CORMAGNESIN [Concomitant]
     Route: 042
     Dates: start: 20230116, end: 20230116
  20. CORMAGNESIN [Concomitant]
     Route: 042
     Dates: start: 20230123, end: 20230123
  21. CORMAGNESIN [Concomitant]
     Route: 042
     Dates: start: 20230203, end: 20230203
  22. OMNIFLORA [Concomitant]
     Route: 048
     Dates: start: 20221219, end: 20230301
  23. MEFENAMIC ACID [Concomitant]
     Active Substance: MEFENAMIC ACID
     Route: 048
     Dates: start: 20230112
  24. MAGNESIUM CARBONATE\MAGNESIUM OXIDE [Concomitant]
     Active Substance: MAGNESIUM CARBONATE\MAGNESIUM OXIDE
     Route: 048
     Dates: start: 20230116
  25. KALIORAL (AUSTRIA) [Concomitant]
  26. DEXIBUPROFEN [Concomitant]
     Active Substance: DEXIBUPROFEN
     Route: 048
     Dates: start: 20230203, end: 20230301
  27. MAGNESIUM [Concomitant]
     Active Substance: MAGNESIUM
     Route: 048
     Dates: start: 20230322
  28. PREGABALIN [Concomitant]
     Active Substance: PREGABALIN
     Route: 048
     Dates: start: 20230411

REACTIONS (2)
  - Urinary tract infection [Recovered/Resolved]
  - Procedural pain [Recovered/Resolved]

NARRATIVE: CASE EVENT DATE: 20221111
